FAERS Safety Report 7080580-0 (Version None)
Quarter: 2010Q4

REPORT INFORMATION
  Report Type: 
  Country: None (occurrence: None)
  Receive Date: 20101025
  Receipt Date: 20101011
  Transmission Date: 20110411
  Serious: Yes (Death)
  Sender: FDA-Public Use
  Company Number: 2010AL000124

PATIENT
  Sex: Male

DRUGS (3)
  1. FOLOTYN [Suspect]
     Indication: HEAD AND NECK CANCER
     Dosage: 190 MG/M**2; QOW; IV
     Route: 042
     Dates: start: 20101007, end: 20101007
  2. VITAMIN B-12 [Concomitant]
  3. FOLIC ACID [Concomitant]

REACTIONS (1)
  - HEAD INJURY [None]
